FAERS Safety Report 8512729-4 (Version None)
Quarter: 2012Q3

REPORT INFORMATION
  Report Type: 
  Country: None (occurrence: None)
  Receive Date: 20120716
  Receipt Date: 20120709
  Transmission Date: 20120928
  Serious: Yes (Death, Hospitalization, Other)
  Sender: FDA-Public Use
  Company Number: US-009507513-2009-200466-NL

PATIENT

DRUGS (1)
  1. NUVARING [Suspect]
     Dosage: CONTINUING: NO
     Dates: start: 20070601, end: 20071001

REACTIONS (11)
  - SUICIDAL BEHAVIOUR [None]
  - THYROID DISORDER [None]
  - ANALGESIC DRUG LEVEL INCREASED [None]
  - HAEMOPTYSIS [None]
  - HAEMATURIA [None]
  - PULMONARY EMBOLISM [None]
  - BLOOD ALCOHOL INCREASED [None]
  - ADJUSTMENT DISORDER [None]
  - INTENTIONAL OVERDOSE [None]
  - SUICIDAL IDEATION [None]
  - NAUSEA [None]
